FAERS Safety Report 8543873-3 (Version None)
Quarter: 2012Q3

REPORT INFORMATION
  Report Type: 
  Country: None (occurrence: None)
  Receive Date: 20120727
  Receipt Date: 20120724
  Transmission Date: 20120928
  Serious: Yes (Other)
  Sender: FDA-Public Use
  Company Number: FR-AMGEN-FRACT2012031506

PATIENT
  Age: 52 Year
  Sex: Male
  Weight: 82 kg

DRUGS (4)
  1. FOLINATE CALCIUM [Concomitant]
     Indication: OESOPHAGEAL ADENOCARCINOMA
     Dosage: 400 MG, UNK
     Route: 042
     Dates: start: 20120328
  2. OXALIPLATIN [Concomitant]
     Indication: OESOPHAGEAL ADENOCARCINOMA
     Dosage: 170 MG, UNK
     Route: 042
     Dates: start: 20120328
  3. PANITUMUMAB [Suspect]
     Indication: OESOPHAGEAL ADENOCARCINOMA
     Dosage: 492 MG, UNK
     Route: 042
     Dates: start: 20120328
  4. FLUOROURACIL [Concomitant]
     Indication: OESOPHAGEAL ADENOCARCINOMA
     Dosage: UNK MG, UNK
     Route: 042
     Dates: start: 20120328

REACTIONS (1)
  - NEUTROPENIA [None]
